FAERS Safety Report 9692489 (Version 1)
Quarter: 2013Q4

REPORT INFORMATION
  Report Type: Spontaneous
  Country: US (occurrence: US)
  Receive Date: 20131118
  Receipt Date: 20131118
  Transmission Date: 20140711
  Serious: No
  Sender: FDA-Public Use
  Company Number: US-BAYER-2013-138575

PATIENT
  Sex: Male
  Weight: 72.56 kg

DRUGS (2)
  1. BETASERON [Suspect]
     Dosage: 0.25 MG, QOD
     Route: 058
  2. MULTIVITAMIN [Concomitant]

REACTIONS (4)
  - Dizziness [Recovered/Resolved]
  - White blood cell count decreased [Recovered/Resolved]
  - Myalgia [Recovered/Resolved]
  - Influenza like illness [Recovered/Resolved]
